FAERS Safety Report 18141190 (Version 1)
Quarter: 2020Q3

REPORT INFORMATION
  Report Type: Spontaneous
  Country: US (occurrence: US)
  Receive Date: 20200812
  Receipt Date: 20200812
  Transmission Date: 20201103
  Serious: No
  Sender: FDA-Public Use
  Company Number: US-OTSUKA-2020_009896

PATIENT
  Age: 63 Year
  Sex: Female

DRUGS (3)
  1. REXULTI [Suspect]
     Active Substance: BREXPIPRAZOLE
     Indication: MAJOR DEPRESSION
     Dosage: 1 MG, QD
     Route: 065
     Dates: start: 2020
  2. REXULTI [Suspect]
     Active Substance: BREXPIPRAZOLE
     Indication: ADJUVANT THERAPY
     Dosage: UNK
     Route: 065
     Dates: start: 202005
  3. TRINTELLIX [Concomitant]
     Active Substance: VORTIOXETINE HYDROBROMIDE
     Indication: MAJOR DEPRESSION
     Dosage: UNK
     Route: 065

REACTIONS (5)
  - Product dose omission issue [Unknown]
  - Therapeutic product effect incomplete [Unknown]
  - Expired product administered [Unknown]
  - Depression [Not Recovered/Not Resolved]
  - Product availability issue [Unknown]

NARRATIVE: CASE EVENT DATE: 202005
